FAERS Safety Report 11906160 (Version 1)
Quarter: 2016Q1

REPORT INFORMATION
  Report Type: Spontaneous
  Country: US (occurrence: None)
  Receive Date: 20160108
  Receipt Date: 20160108
  Transmission Date: 20160526
  Serious: Yes (Disabling)
  Sender: FDA-Public Use
  Company Number: None

PATIENT
  Age: 49 Year
  Sex: Female
  Weight: 72.58 kg

DRUGS (7)
  1. VITAMIN C [Concomitant]
     Active Substance: ASCORBIC ACID
  2. XANAX [Concomitant]
     Active Substance: ALPRAZOLAM
  3. PROBIOTICS [Concomitant]
     Active Substance: PROBIOTICS NOS
  4. IRON [Concomitant]
     Active Substance: IRON
  5. VITAMIN D [Concomitant]
     Active Substance: CHOLECALCIFEROL
  6. CIPRO [Suspect]
     Active Substance: CIPROFLOXACIN HYDROCHLORIDE
     Indication: CYSTITIS
     Route: 048
  7. ADVAOR [Concomitant]

REACTIONS (7)
  - Insomnia [None]
  - Feeling abnormal [None]
  - Photopsia [None]
  - Anxiety [None]
  - Mania [None]
  - Musculoskeletal pain [None]
  - Panic attack [None]
